FAERS Safety Report 16066808 (Version 2)
Quarter: 2019Q2

REPORT INFORMATION
  Report Type: Spontaneous
  Country: PL (occurrence: PL)
  Receive Date: 20190313
  Receipt Date: 20190401
  Transmission Date: 20190711
  Serious: Yes (Other)
  Sender: FDA-Public Use
  Company Number: PL-INCYTE CORPORATION-2019IN002214

PATIENT

DRUGS (3)
  1. JAKAVI [Suspect]
     Active Substance: RUXOLITINIB
     Dosage: 20 MG, BID
     Route: 065
     Dates: start: 20160906
  2. JAKAVI [Suspect]
     Active Substance: RUXOLITINIB
     Indication: MYELOFIBROSIS
     Dosage: 20 MG, BID
     Route: 065
     Dates: start: 20160225
  3. MOMELOTINIB [Suspect]
     Active Substance: MOMELOTINIB
     Indication: PRODUCT USED FOR UNKNOWN INDICATION
     Dosage: 20 MG, BID
     Route: 065
     Dates: end: 20160903

REACTIONS (15)
  - Anaemia [Unknown]
  - Abdominal distension [Recovered/Resolved]
  - Suicidal ideation [Unknown]
  - Cough [Unknown]
  - Renal colic [Unknown]
  - Blood creatinine increased [Unknown]
  - White blood cell count increased [Recovered/Resolved]
  - Night sweats [Unknown]
  - Bone pain [Unknown]
  - Asthenia [Unknown]
  - Splenomegaly [Unknown]
  - Myelofibrosis [Unknown]
  - Body temperature increased [Unknown]
  - Renal disorder [Unknown]
  - Pruritus [Unknown]

NARRATIVE: CASE EVENT DATE: 20160304
